FAERS Safety Report 15734193 (Version 1)
Quarter: 2018Q4

REPORT INFORMATION
  Report Type: Spontaneous
  Country: GB (occurrence: GB)
  Receive Date: 20181218
  Receipt Date: 20181218
  Transmission Date: 20190205
  Serious: Yes (Hospitalization, Other)
  Sender: FDA-Public Use
  Company Number: GB-MACLEODS PHARMACEUTICALS US LTD-MAC2018019206

PATIENT

DRUGS (5)
  1. ATROPINE. [Suspect]
     Active Substance: ATROPINE
     Indication: DROOLING
     Dosage: 0.5 MILLILITER, QD (OFF LABEL USE)
     Route: 060
  2. STALEVO [Suspect]
     Active Substance: CARBIDOPA\ENTACAPONE\LEVODOPA
     Indication: PARKINSON^S DISEASE
     Dosage: 1 DOSAGE FORM TID OF CARBIDOPA 25 MG/ENTACAPONE 200 MG/LEVODOPA 100 MG
     Route: 048
  3. RASAGILINE. [Suspect]
     Active Substance: RASAGILINE
     Indication: PARKINSON^S DISEASE
     Dosage: 1 MILLIGRAM, QD
     Route: 065
  4. ATROPINE. [Suspect]
     Active Substance: ATROPINE
     Indication: SALIVARY HYPERSECRETION
  5. PRAMIPEXOLE. [Suspect]
     Active Substance: PRAMIPEXOLE
     Indication: PARKINSON^S DISEASE
     Dosage: 2.62 MILLIGRAM, QD MODIFIED RELEASE (DOPAMINE AGONIST)
     Route: 065

REACTIONS (8)
  - Dysarthria [Recovered/Resolved]
  - Gait disturbance [Recovered/Resolved]
  - Road traffic accident [Recovered/Resolved]
  - Delirium [Recovered/Resolved]
  - Fall [Recovered/Resolved]
  - Psychotic disorder [Recovered/Resolved]
  - Off label use [Recovered/Resolved]
  - Condition aggravated [Recovered/Resolved]
